FAERS Safety Report 9767980 (Version 2)
Quarter: 2014Q1

REPORT INFORMATION
  Report Type: Spontaneous
  Country: US (occurrence: US)
  Receive Date: 20131217
  Receipt Date: 20140115
  Transmission Date: 20141002
  Serious: No
  Sender: FDA-Public Use
  Company Number: US-009507513-1312USA007767

PATIENT
  Age: 64 Year
  Sex: Female
  Weight: 63.49 kg

DRUGS (5)
  1. OXYTROL FOR WOMEN [Suspect]
     Indication: HYPERTONIC BLADDER
     Dosage: 1 DF, Q4D
     Route: 062
     Dates: start: 20131112, end: 20131118
  2. METRONIDAZOLE [Concomitant]
     Indication: ROSACEA
     Dosage: UNK, UNKNOWN
  3. FLUTICASONE PROPIONATE [Concomitant]
     Indication: RHINITIS
     Dosage: 50 MG, UNKNOWN
  4. CENTRUM SILVER [Concomitant]
     Indication: PRODUCT USED FOR UNKNOWN INDICATION
     Dosage: UNK, UNKNOWN
  5. CALTRATE (CALCIUM CARBONATE (+) CHOLECALCIFEROL) [Concomitant]
     Indication: PRODUCT USED FOR UNKNOWN INDICATION
     Dosage: 600 DF, UNKNOWN

REACTIONS (2)
  - Application site rash [Recovered/Resolved]
  - Pruritus [Recovered/Resolved]
